FAERS Safety Report 11718422 (Version 1)
Quarter: 2015Q4

REPORT INFORMATION
  Report Type: Spontaneous
  Country: US (occurrence: US)
  Receive Date: 20151110
  Receipt Date: 20151110
  Transmission Date: 20160304
  Serious: No
  Sender: FDA-Public Use
  Company Number: US-BIOGENIDEC-2015BI148680

PATIENT
  Sex: Female

DRUGS (1)
  1. AVONEX [Suspect]
     Active Substance: INTERFERON BETA-1A
     Indication: MULTIPLE SCLEROSIS
     Route: 030
     Dates: start: 19970401, end: 20071101

REACTIONS (4)
  - Bladder disorder [Not Recovered/Not Resolved]
  - Incontinence [Unknown]
  - Gastrointestinal disorder [Not Recovered/Not Resolved]
  - Multiple sclerosis [Recovered/Resolved]
